FAERS Safety Report 6212077-1 (Version None)
Quarter: 2009Q2

REPORT INFORMATION
  Report Type: 
  Country: None (occurrence: None)
  Receive Date: 20090602
  Receipt Date: 20090521
  Transmission Date: 20091009
  Serious: Yes (Life-Threatening, Hospitalization, Other)
  Sender: FDA-Public Use
  Company Number: PH-TYCO HEALTHCARE/MALLINCKRODT-T200900991

PATIENT
  Sex: Female

DRUGS (2)
  1. OPTIRAY 300 [Suspect]
     Indication: COMPUTERISED TOMOGRAM
     Dosage: 1 ML (CC) TEST DOSE DILUTED IN 10 CC PNSS, SINGLE
     Route: 042
     Dates: start: 20090504, end: 20090504
  2. OPTIRAY 300 [Suspect]
     Dosage: 90 ML, SINGLE
     Route: 042
     Dates: start: 20090504, end: 20090504

REACTIONS (12)
  - APHASIA [None]
  - CARDIO-RESPIRATORY ARREST [None]
  - CHEST PAIN [None]
  - DYSPNOEA [None]
  - ERYTHEMA [None]
  - INJECTION SITE URTICARIA [None]
  - LOSS OF CONSCIOUSNESS [None]
  - ORAL DISCOMFORT [None]
  - RASH PAPULAR [None]
  - SINUS BRADYCARDIA [None]
  - SWOLLEN TONGUE [None]
  - URTICARIA [None]
